FAERS Safety Report 9302013 (Version 1)
Quarter: 2013Q2

REPORT INFORMATION
  Report Type: Spontaneous
  Country: US (occurrence: US)
  Receive Date: 20130521
  Receipt Date: 20130521
  Transmission Date: 20140414
  Serious: Yes (Other)
  Sender: FDA-Public Use
  Company Number: CHPA2013US008399

PATIENT
  Age: 10 Year
  Sex: Male

DRUGS (5)
  1. TRIAMINIC COLD AND ALLERGY [Suspect]
     Indication: COUGH
     Dosage: ACCORDING TO LABEL
     Route: 048
     Dates: end: 2013
  2. TRIAMINIC COLD AND ALLERGY [Suspect]
     Indication: RHINORRHOEA
  3. TRIAMINIC COLD AND ALLERGY [Suspect]
     Indication: EYE PRURITUS
  4. TRIAMINIC COLD AND ALLERGY [Suspect]
     Indication: LACRIMATION INCREASED
  5. TRIAMINIC COLD AND ALLERGY [Suspect]
     Indication: HYPERSENSITIVITY

REACTIONS (2)
  - Pneumonia [Recovered/Resolved]
  - Therapeutic response unexpected [Unknown]
